FAERS Safety Report 25307635 (Version 2)
Quarter: 2025Q2

REPORT INFORMATION
  Report Type: Spontaneous
  Country: CO (occurrence: CO)
  Receive Date: 20250513
  Receipt Date: 20250520
  Transmission Date: 20250717
  Serious: Yes (Life-Threatening, Other)
  Sender: SANDOZ
  Company Number: CO-002147023-NVSC2024CO149306

PATIENT
  Age: 14 Year
  Sex: Male
  Weight: 83 kg

DRUGS (12)
  1. MONTELUKAST [Suspect]
     Active Substance: MONTELUKAST
     Indication: Asthma
     Dosage: 1 DOSAGE FORM, QD (EVERY NIGHT/ DAILY)
     Route: 048
  2. PANTOPRAZOLE [Suspect]
     Active Substance: PANTOPRAZOLE
     Indication: Gastroenteritis
     Route: 048
  3. XOLAIR [Suspect]
     Active Substance: OMALIZUMAB
     Route: 058
     Dates: start: 20241202
  4. XOLAIR [Suspect]
     Active Substance: OMALIZUMAB
     Route: 058
     Dates: start: 20241218
  5. XOLAIR [Suspect]
     Active Substance: OMALIZUMAB
     Route: 058
     Dates: start: 20250114
  6. XOLAIR [Suspect]
     Active Substance: OMALIZUMAB
     Dosage: 300 MG, BIW (EVERY 15 DAYS) (300 UI)
     Route: 058
     Dates: start: 20241216
  7. XOLAIR [Suspect]
     Active Substance: OMALIZUMAB
     Dosage: 150 MG, BIW (EVERY 15 DAYS)
     Route: 058
     Dates: start: 20250103
  8. XOLAIR [Suspect]
     Active Substance: OMALIZUMAB
     Dosage: 150 MG, BIW (EVERY 15 DAYS) (EVERY 15  DAYS)
     Route: 058
     Dates: start: 20250120
  9. XOLAIR [Suspect]
     Active Substance: OMALIZUMAB
     Dosage: 150 MG, BIW
     Route: 058
     Dates: start: 202306, end: 202411
  10. XOLAIR [Suspect]
     Active Substance: OMALIZUMAB
     Dosage: 2 DOSAGE FORM, BIW (EVERY 15 DAYS)
     Route: 058
     Dates: end: 202401
  11. XOLAIR [Suspect]
     Active Substance: OMALIZUMAB
     Indication: Asthma
     Dosage: 300 MG, BIW
     Route: 058
     Dates: start: 20230615, end: 20241218
  12. FEXOFENADINE [Concomitant]
     Active Substance: FEXOFENADINE HYDROCHLORIDE
     Indication: Product used for unknown indication
     Dosage: 1 DOSAGE FORM (120 MG), QD (EVERY  NIGHT) (TABLET)
     Route: 048

REACTIONS (46)
  - Asthmatic crisis [Not Recovered/Not Resolved]
  - Asthmatic crisis [Recovered/Resolved]
  - Asphyxia [Unknown]
  - Acute respiratory failure [Unknown]
  - Asthmatic crisis [Recovered/Resolved]
  - Pyrexia [Not Recovered/Not Resolved]
  - Malaise [Not Recovered/Not Resolved]
  - Abdominal pain upper [Not Recovered/Not Resolved]
  - Ill-defined disorder [Unknown]
  - Overweight [Unknown]
  - Blood pressure increased [Unknown]
  - Adverse food reaction [Unknown]
  - Gastrooesophageal reflux disease [Unknown]
  - Irritable bowel syndrome [Unknown]
  - Dyspnoea [Unknown]
  - Conjunctivitis allergic [Unknown]
  - Obesity [Unknown]
  - Dry skin [Unknown]
  - Skin striae [Unknown]
  - Keratosis pilaris [Unknown]
  - Snoring [Unknown]
  - Gastrointestinal microorganism overgrowth [Unknown]
  - Gastroenteritis [Unknown]
  - Sensation of foreign body [Unknown]
  - Defaecation urgency [Recovering/Resolving]
  - Thyroxine abnormal [Unknown]
  - Blood glucose increased [Unknown]
  - Blood pressure abnormal [Unknown]
  - Dermatitis atopic [Unknown]
  - Epistaxis [Unknown]
  - Dyspepsia [Unknown]
  - Cough [Not Recovered/Not Resolved]
  - Blood thyroid stimulating hormone abnormal [Unknown]
  - Body mass index abnormal [Unknown]
  - Blood urea abnormal [Unknown]
  - High density lipoprotein abnormal [Unknown]
  - Rhinitis allergic [Unknown]
  - Abdominal discomfort [Unknown]
  - Abdominal distension [Unknown]
  - Abdominal pain [Unknown]
  - Nausea [Unknown]
  - Arthralgia [Unknown]
  - Hypersensitivity [Unknown]
  - Urticaria [Unknown]
  - Inappropriate schedule of product administration [Unknown]
  - Product use in unapproved indication [Unknown]

NARRATIVE: CASE EVENT DATE: 20241202
